FAERS Safety Report 20434732 (Version 3)
Quarter: 2022Q1

REPORT INFORMATION
  Report Type: Report from Study
  Country: US (occurrence: US)
  Receive Date: 20220206
  Receipt Date: 20220304
  Transmission Date: 20220423
  Serious: No
  Sender: FDA-Public Use
  Company Number: US-NOVARTISTESTPH-NVSC2022US023949

PATIENT
  Sex: Female

DRUGS (1)
  1. PIQRAY [Suspect]
     Active Substance: ALPELISIB
     Indication: Breast cancer
     Dosage: 300 MG, QD
     Route: 048
     Dates: start: 202201

REACTIONS (8)
  - Oral herpes [Unknown]
  - Gastritis [Unknown]
  - Blood glucose increased [Unknown]
  - Product distribution issue [Unknown]
  - Product dose omission issue [Unknown]
  - Hyperglycaemia [Unknown]
  - Lip pain [Unknown]
  - Blood creatinine increased [Unknown]
